FAERS Safety Report 6062172-5 (Version None)
Quarter: 2009Q1

REPORT INFORMATION
  Report Type: 
  Country: None (occurrence: None)
  Receive Date: 20090202
  Receipt Date: 20090202
  Transmission Date: 20090719
  Serious: Yes (Other)
  Sender: FDA-Public Use
  Company Number: None

PATIENT
  Age: 64 Year
  Sex: Female
  Weight: 56.6996 kg

DRUGS (1)
  1. PREVACID [Suspect]
     Indication: DYSPEPSIA

REACTIONS (3)
  - CHILLS [None]
  - HEADACHE [None]
  - TREMOR [None]
